FAERS Safety Report 6123989-1 (Version None)
Quarter: 2009Q1

REPORT INFORMATION
  Report Type: 
  Country: None (occurrence: None)
  Receive Date: 20090318
  Receipt Date: 20090318
  Transmission Date: 20090719
  Serious: Yes (Hospitalization)
  Sender: FDA-Public Use
  Company Number: None

PATIENT
  Age: 61 Year
  Sex: Male
  Weight: 71.6683 kg

DRUGS (9)
  1. GEMCITABINE [Suspect]
     Indication: PANCREATIC CARCINOMA
     Dosage: 1000MG IV DAYS 1, 8
     Dates: start: 20081215
  2. TARCEVA [Suspect]
     Indication: PANCREATIC CARCINOMA
     Dosage: 50 MG QD
     Dates: start: 20081215
  3. RADIATION 40CGY BID DAYS 1, 2, 8, 9 [Suspect]
     Indication: PANCREATIC CARCINOMA
     Dosage: 40CGY BID DAYS 1, 2, 8, 9
     Dates: start: 20081215
  4. SPIROALDACTONE [Concomitant]
  5. REGLAN [Concomitant]
  6. COLACE [Concomitant]
  7. ZOFRAN [Concomitant]
  8. COMPAZINE [Concomitant]
  9. MEGACE [Concomitant]

REACTIONS (3)
  - DISCOMFORT [None]
  - PNEUMONIA [None]
  - URINARY TRACT DISORDER [None]
